FAERS Safety Report 19949867 (Version 1)
Quarter: 2021Q4

REPORT INFORMATION
  Report Type: Spontaneous
  Country: US (occurrence: US)
  Receive Date: 20211008
  Receipt Date: 20211008
  Transmission Date: 20220303
  Serious: No
  Sender: FDA-Public Use
  Company Number: None

PATIENT
  Age: 30 Year
  Sex: Female
  Weight: 61.23 kg

DRUGS (2)
  1. BUPRENORPHINE\NALOXONE [Suspect]
     Active Substance: BUPRENORPHINE\NALOXONE
     Indication: Drug dependence
     Dosage: ?          QUANTITY:1-3 D;
     Route: 060
  2. BUPRENORPHINE [Concomitant]
     Active Substance: BUPRENORPHINE

REACTIONS (2)
  - Rash [None]
  - Migraine [None]
